FAERS Safety Report 6324882-1 (Version None)
Quarter: 2009Q3

REPORT INFORMATION
  Report Type: 
  Country: None (occurrence: None)
  Receive Date: 20090824
  Receipt Date: 20090630
  Transmission Date: 20100115
  Serious: No
  Sender: FDA-Public Use
  Company Number: US-ABBOTT-09P-163-0580703-00

PATIENT
  Sex: Male
  Weight: 99.88 kg

DRUGS (19)
  1. NIASPAN [Suspect]
     Indication: BLOOD CHOLESTEROL INCREASED
     Dosage: DOSE WAS INCREASED THREE TIMES IN 4 MONTHS, DOSES UNKNOWN
     Route: 048
     Dates: start: 20030101, end: 20040101
  2. NIASPAN [Suspect]
     Indication: BLOOD CHOLESTEROL
     Route: 048
     Dates: start: 20090616
  3. CIPRO [Concomitant]
     Indication: PROSTATIC SPECIFIC ANTIGEN INCREASED
  4. COLAZOL [Concomitant]
     Indication: COLITIS ULCERATIVE
  5. METHAZAMINE ENEMA [Concomitant]
     Indication: COLITIS ULCERATIVE
  6. ATENOLOL [Concomitant]
     Indication: BLOOD PRESSURE
  7. BALSALAZIDE [Concomitant]
     Dosage: FORM STRENGHT: 750 MG
     Route: 048
  8. MASALAMINE [Concomitant]
     Indication: ENEMA ADMINISTRATION
     Route: 054
  9. FIBER SURE [Concomitant]
     Indication: DRUG USE FOR UNKNOWN INDICATION
     Dosage: 6 TABLESPOONS
  10. FOLIC ACID [Concomitant]
     Indication: DRUG USE FOR UNKNOWN INDICATION
  11. VIT D [Concomitant]
     Indication: DRUG USE FOR UNKNOWN INDICATION
  12. VIT C [Concomitant]
     Indication: DRUG USE FOR UNKNOWN INDICATION
  13. ASPIRIN [Concomitant]
     Indication: DRUG USE FOR UNKNOWN INDICATION
  14. APRAZOLAM [Concomitant]
     Indication: ANXIETY
  15. LOVAZA [Concomitant]
     Indication: DRUG USE FOR UNKNOWN INDICATION
  16. M.V.I. [Concomitant]
     Indication: DRUG USE FOR UNKNOWN INDICATION
  17. FLOMAX [Concomitant]
     Indication: BLADDER DISORDER
  18. YOUGART [Concomitant]
     Indication: DRUG USE FOR UNKNOWN INDICATION
     Dosage: 6 TBSP
  19. AMBIEN [Concomitant]
     Indication: INSOMNIA

REACTIONS (5)
  - ANXIETY [None]
  - BLOOD PRESSURE INCREASED [None]
  - DRUG DOSE OMISSION [None]
  - DRUG INEFFECTIVE [None]
  - LIPIDS ABNORMAL [None]
